FAERS Safety Report 9374545 (Version 1)
Quarter: 2013Q2

REPORT INFORMATION
  Report Type: Spontaneous
  Country: NL (occurrence: None)
  Receive Date: 20130624
  Receipt Date: 20130624
  Transmission Date: 20140414
  Serious: Yes (Other)
  Sender: FDA-Public Use
  Company Number: NL-1198905

PATIENT
  Sex: 0

DRUGS (1)
  1. TOBRADEX [Suspect]
     Indication: POSTOPERATIVE CARE
     Dosage: (FIRST WEEK OPHTHALMIC), (SECOND WEEK OPHTHALMIC), (THIRD WEEK OPHTHALMIC)

REACTIONS (2)
  - Optic nerve disorder [None]
  - Intraocular pressure increased [None]
